FAERS Safety Report 6765181-3 (Version None)
Quarter: 2010Q2

REPORT INFORMATION
  Report Type: 
  Country: None (occurrence: None)
  Receive Date: 20100610
  Receipt Date: 20100610
  Transmission Date: 20101027
  Serious: Yes (Life-Threatening)
  Sender: FDA-Public Use
  Company Number: None

PATIENT
  Age: 81 Year
  Sex: Female
  Weight: 64.9 kg

DRUGS (4)
  1. LOVENOX [Suspect]
     Indication: THROMBOSIS PROPHYLAXIS
     Dosage: 65 MG Q12HR SQ, 30 MG X1 SQ
     Route: 058
     Dates: start: 20091120, end: 20091124
  2. LOVENOX [Suspect]
     Indication: THROMBOSIS PROPHYLAXIS
     Dosage: 65 MG Q12HR SQ, 30 MG X1 SQ
     Route: 058
     Dates: start: 20091125, end: 20091125
  3. SOLU-MEDROL [Concomitant]
  4. PREDNISONE [Concomitant]

REACTIONS (5)
  - CHRONIC OBSTRUCTIVE PULMONARY DISEASE [None]
  - CONDITION AGGRAVATED [None]
  - HYPOTENSION [None]
  - INTRA-ABDOMINAL HAEMATOMA [None]
  - PNEUMONIA [None]
